FAERS Safety Report 5255444-5 (Version None)
Quarter: 2007Q1

REPORT INFORMATION
  Report Type: 
  Country: None (occurrence: None)
  Receive Date: 20070305
  Receipt Date: 20070219
  Transmission Date: 20070707
  Serious: Yes (Hospitalization)
  Sender: FDA-Public Use
  Company Number: US-ELI_LILLY_AND_COMPANY-US200702004243

PATIENT
  Age: 42 Year
  Sex: Female
  Weight: 56.689 kg

DRUGS (6)
  1. CYMBALTA [Suspect]
     Dosage: 30 MG, UNK
     Dates: start: 20061129
  2. CONTRAST MEDIA [Concomitant]
  3. NEURONTIN [Concomitant]
  4. TOPAMAX [Concomitant]
  5. MORPHINE [Concomitant]
  6. AMOXICILLIN [Concomitant]

REACTIONS (2)
  - DYSARTHRIA [None]
  - HEMIPARESIS [None]
